FAERS Safety Report 4298547-4 (Version None)
Quarter: 2004Q1

REPORT INFORMATION
  Report Type: 
  Country: None (occurrence: None)
  Receive Date: 20040218
  Receipt Date: 20040209
  Transmission Date: 20041129
  Serious: Yes (Other)
  Sender: FDA-Public Use
  Company Number: PHEH2004US01727

PATIENT
  Age: 41 Year
  Sex: Female

DRUGS (1)
  1. ESTRADERM [Suspect]
     Indication: TOTAL HYSTERECTOMY
     Dates: start: 20020201, end: 20030708

REACTIONS (3)
  - LUNG OPERATION [None]
  - METASTASES TO LUNG [None]
  - ROAD TRAFFIC ACCIDENT [None]
